FAERS Safety Report 24433312 (Version 2)
Quarter: 2025Q1

REPORT INFORMATION
  Report Type: Spontaneous
  Country: PT (occurrence: PT)
  Receive Date: 20241014
  Receipt Date: 20250213
  Transmission Date: 20250409
  Serious: Yes (Hospitalization)
  Sender: CELLTRION
  Company Number: None

PATIENT

DRUGS (5)
  1. YUFLYMA [Suspect]
     Active Substance: ADALIMUMAB-AATY
     Indication: Sweat gland infection
     Route: 058
     Dates: start: 20231017, end: 20240308
  2. CLINDAMYCIN [Suspect]
     Active Substance: CLINDAMYCIN
     Indication: Sweat gland infection
     Dates: end: 20240223
  3. DESOGESTREL [Concomitant]
     Active Substance: DESOGESTREL
     Indication: Product use in unapproved indication
     Route: 048
  4. FERRO [IRON] [Concomitant]
     Indication: Product use in unapproved indication
     Route: 048
  5. SERTRALINE HYDROCHLORIDE [Concomitant]
     Active Substance: SERTRALINE HYDROCHLORIDE
     Indication: Product use in unapproved indication
     Route: 048

REACTIONS (4)
  - Eye oedema [Recovered/Resolved]
  - Erythema [Recovered/Resolved]
  - Pruritus [Recovered/Resolved]
  - Intentional product use issue [Unknown]

NARRATIVE: CASE EVENT DATE: 20240224
